FAERS Safety Report 6838121-6 (Version None)
Quarter: 2010Q3

REPORT INFORMATION
  Report Type: 
  Country: None (occurrence: None)
  Receive Date: 20100713
  Receipt Date: 20070531
  Transmission Date: 20110219
  Serious: No
  Sender: FDA-Public Use
  Company Number: US-PFIZER INC-2007046484

PATIENT
  Sex: Female
  Weight: 68.181 kg

DRUGS (2)
  1. CHANTIX [Suspect]
     Indication: SMOKING CESSATION THERAPY
     Dates: start: 20070430, end: 20070501
  2. BENICAR [Concomitant]
     Indication: HYPERTENSION

REACTIONS (4)
  - ANXIETY [None]
  - MALAISE [None]
  - NAUSEA [None]
  - VOMITING [None]
